FAERS Safety Report 19577679 (Version 1)
Quarter: 2021Q3

REPORT INFORMATION
  Report Type: Spontaneous
  Country: US (occurrence: US)
  Receive Date: 20210719
  Receipt Date: 20210719
  Transmission Date: 20211014
  Serious: Yes (Life-Threatening, Other)
  Sender: FDA-Public Use
  Company Number: US-PRECISION DOSE, INC.-2021PRD00004

PATIENT
  Age: 8 Week
  Sex: Male
  Weight: 5.6 kg

DRUGS (5)
  1. FAMOTIDINE. [Concomitant]
     Active Substance: FAMOTIDINE
     Route: 065
  2. DEXMEDETOMIDINE HYDROCHLORIDE IN SODIUM CHLORIDE [Suspect]
     Active Substance: DEXMEDETOMIDINE HYDROCHLORIDE
     Indication: SEDATION
     Dosage: 0.2 MCG/KG/H
     Route: 065
  3. DEXMEDETOMIDINE HYDROCHLORIDE IN SODIUM CHLORIDE [Suspect]
     Active Substance: DEXMEDETOMIDINE HYDROCHLORIDE
     Indication: AGITATION
     Dosage: 0.7 MCG/KG/H
     Route: 065
  4. ACETAMINOPHEN. [Concomitant]
     Active Substance: ACETAMINOPHEN
     Route: 065
  5. SIMETHICONE (DIMETHICONE) [Concomitant]
     Active Substance: DIMETHICONE
     Dosage: UNK
     Route: 065

REACTIONS (2)
  - Bradycardia [Recovered/Resolved]
  - Cardiac arrest [Recovered/Resolved]
